FAERS Safety Report 7928712-3 (Version None)
Quarter: 2011Q4

REPORT INFORMATION
  Report Type: 
  Country: None (occurrence: None)
  Receive Date: 20111118
  Receipt Date: 20111116
  Transmission Date: 20120403
  Serious: Yes (Other)
  Sender: FDA-Public Use
  Company Number: DE-BAYER-2011-111104

PATIENT
  Sex: Female

DRUGS (3)
  1. ASPIRIN [Suspect]
     Dosage: 500 MG, BID
     Route: 042
  2. SUMATRIPTAN [Concomitant]
     Indication: MIGRAINE
  3. ASPIRIN [Concomitant]
     Dosage: 100 MG, QD
     Dates: start: 20100101

REACTIONS (4)
  - ABDOMINAL PAIN LOWER [None]
  - BLOOD PRESSURE DECREASED [None]
  - HYPERHIDROSIS [None]
  - COLD SWEAT [None]
